FAERS Safety Report 10229672 (Version 1)
Quarter: 2014Q2

REPORT INFORMATION
  Report Type: Spontaneous
  Country: US (occurrence: None)
  Receive Date: 20140609
  Receipt Date: 20140609
  Transmission Date: 20141212
  Serious: Yes (Life-Threatening)
  Sender: FDA-Public Use
  Company Number: FK201402236

PATIENT
  Age: 37 Year
  Sex: Female

DRUGS (10)
  1. PROTAMINE SULFATE [Suspect]
     Indication: PRODUCT USED FOR UNKNOWN INDICATION
     Dosage: GIVEN OVER 12 MINUTES
  2. DIPHENHYDRAMINE INJECTION (MANUFACTURER UNKNOWN (DIPHENHYDRAMINE HYDROCHLORIDE) (DIPHENHYDRAMINE HYDROCHLORIDE) [Suspect]
     Indication: PRODUCT USED FOR UNKNOWN INDICATION
  3. VASOPRESSIN INJECTION [Suspect]
     Indication: PRODUCT USED FOR UNKNOWN INDICATION
  4. LEVOTHYROXINE SODIUM FOR INJECTION,200 MCG/6 ML VIAL + 500 MCG/6 ML VI [Suspect]
     Indication: PRODUCT USED FOR UNKNOWN INDICATION
  5. EPINEPHRINE [Suspect]
     Indication: PRODUCT USED FOR UNKNOWN INDICATION
  6. NOREPINEPHRINE [Suspect]
     Indication: PRODUCT USED FOR UNKNOWN INDICATION
  7. PHENYLEPHRINE [Suspect]
     Indication: PRODUCT USED FOR UNKNOWN INDICATION
  8. DESMOPRESSIN (DESMOPRESSIN) [Suspect]
     Indication: PRODUCT USED FOR UNKNOWN INDICATION
  9. HYDROCORTISONE (HYDROCORTISONE) [Suspect]
     Indication: PRODUCT USED FOR UNKNOWN INDICATION
  10. METHYLENE BLUE (METHYLTHIONINIUM CHLORIDE) [Suspect]
     Indication: PRODUCT USED FOR UNKNOWN INDICATION

REACTIONS (3)
  - Kounis syndrome [None]
  - Stress cardiomyopathy [None]
  - Hypotension [None]
